FAERS Safety Report 4990262-4 (Version None)
Quarter: 2006Q2

REPORT INFORMATION
  Report Type: 
  Country: None (occurrence: None)
  Receive Date: 20060503
  Receipt Date: 20060501
  Transmission Date: 20061013
  Serious: Yes (Other)
  Sender: FDA-Public Use
  Company Number: US-GLAXOSMITHKLINE-A0603864A

PATIENT
  Sex: Male

DRUGS (2)
  1. COREG [Suspect]
     Route: 048
  2. ATROPINE [Concomitant]

REACTIONS (1)
  - GLAUCOMA [None]
